FAERS Safety Report 11885369 (Version 1)
Quarter: 2015Q4

REPORT INFORMATION
  Report Type: Spontaneous
  Country: US (occurrence: None)
  Receive Date: 20151231
  Receipt Date: 20151231
  Transmission Date: 20160305
  Serious: Yes (Life-Threatening, Hospitalization)
  Sender: FDA-Public Use
  Company Number: None

PATIENT
  Age: 66 Year
  Sex: Male
  Weight: 159.6 kg

DRUGS (3)
  1. HYDROCHLOROTHIAZIDE/LISINOPRIL [Suspect]
     Active Substance: HYDROCHLOROTHIAZIDE\LISINOPRIL
     Dates: start: 20081028, end: 20151204
  2. LISINOPRIL. [Suspect]
     Active Substance: LISINOPRIL
     Indication: ANGIOEDEMA
     Route: 048
     Dates: start: 20151205, end: 20151207
  3. LISINOPRIL. [Suspect]
     Active Substance: LISINOPRIL
     Indication: DIABETES MELLITUS
     Route: 048
     Dates: start: 20151205, end: 20151207

REACTIONS (1)
  - Angioedema [None]

NARRATIVE: CASE EVENT DATE: 20151207
